FAERS Safety Report 6060918-3 (Version None)
Quarter: 2009Q1

REPORT INFORMATION
  Report Type: 
  Country: None (occurrence: None)
  Receive Date: 20090202
  Receipt Date: 20090119
  Transmission Date: 20090719
  Serious: Yes (Death)
  Sender: FDA-Public Use
  Company Number: JP-ABBOTT-09P-087-0500611-00

PATIENT
  Age: 84 Year
  Sex: Male

DRUGS (3)
  1. LEUPROLIDE ACETATE [Suspect]
     Indication: PROSTATE CANCER STAGE III
     Route: 058
     Dates: start: 20071116, end: 20080731
  2. CASODEX [Concomitant]
     Indication: PROSTATE CANCER STAGE III
     Route: 048
     Dates: start: 20071116
  3. BUP-4 [Concomitant]
     Indication: NEUROGENIC BLADDER
     Route: 048
     Dates: start: 20080110

REACTIONS (1)
  - BILE DUCT CANCER [None]
